FAERS Safety Report 8678452 (Version 4)
Quarter: 2015Q1

REPORT INFORMATION
  Report Type: Spontaneous
  Country: JP (occurrence: JP)
  Receive Date: 20120723
  Receipt Date: 20150114
  Transmission Date: 20150721
  Serious: Yes (Other)
  Sender: FDA-Public Use
  Company Number: PHHY2012JP061663

PATIENT
  Age: 64 Year
  Sex: Male

DRUGS (1)
  1. RASILEZ [Suspect]
     Active Substance: ALISKIREN
     Indication: PRIMARY HYPERALDOSTERONISM
     Route: 048

REACTIONS (4)
  - Blood aldosterone decreased [Unknown]
  - Adrenal gland cancer [Unknown]
  - Drug ineffective [Unknown]
  - Primary hyperaldosteronism [Unknown]
